FAERS Safety Report 8027867-2 (Version None)
Quarter: 2012Q1

REPORT INFORMATION
  Report Type: 
  Country: None (occurrence: None)
  Receive Date: 20120104
  Receipt Date: 20111229
  Transmission Date: 20120608
  Serious: Yes (Disabling)
  Sender: FDA-Public Use
  Company Number: AUR-APL-2011-06328

PATIENT
  Age: 89 Year
  Sex: Female
  Weight: 63.5 kg

DRUGS (16)
  1. FLUTICASONE PROPIONATE [Concomitant]
  2. FUROSEMIDE [Concomitant]
  3. ORAL REHYDRATRION SALTS (ORAL REHYDRATRION SALTS ) [Concomitant]
  4. PROCHLORPERAZINE MALEATE [Concomitant]
  5. SALAMOL (SALBUTAMOL) [Concomitant]
  6. ASACOL [Concomitant]
  7. PREDNISOLONE [Concomitant]
  8. MOVICOL (NULYTELY /01053601/) [Concomitant]
  9. SPIRIVA [Concomitant]
  10. AMOXICILLIN [Concomitant]
  11. BISOPROLOL FUMARATE [Concomitant]
  12. OILATUM (PARAFIN, LIQUID) [Concomitant]
  13. LEVOTHYROXINE SODIUM [Concomitant]
  14. BISOPROLOL FUMARATE [Suspect]
     Indication: PRODUCT USED FOR UNKNOWN INDICATION
  15. OMEPRAZOLE [Concomitant]
  16. VERTAB SR (VERAPAMIL HYDROCHLORIDE) [Concomitant]

REACTIONS (2)
  - WHEEZING [None]
  - DIARRHOEA [None]
